FAERS Safety Report 7326889-4 (Version None)
Quarter: 2011Q1

REPORT INFORMATION
  Report Type: 
  Country: None (occurrence: None)
  Receive Date: 20110302
  Receipt Date: 20100129
  Transmission Date: 20110831
  Serious: Yes (Death, Hospitalization, Other)
  Sender: FDA-Public Use
  Company Number: US-PFIZER INC-2010013066

PATIENT
  Sex: Female
  Weight: 39 kg

DRUGS (1)
  1. DILANTIN-125 [Suspect]
     Indication: CONVULSION PROPHYLAXIS
     Dosage: UNK
     Dates: start: 20040331, end: 20040509

REACTIONS (1)
  - STEVENS-JOHNSON SYNDROME [None]
